FAERS Safety Report 9337684 (Version 3)
Quarter: 2014Q1

REPORT INFORMATION
  Report Type: Spontaneous
  Country: US (occurrence: US)
  Receive Date: 20130607
  Receipt Date: 20140103
  Transmission Date: 20141002
  Serious: Yes (Death, Hospitalization)
  Sender: FDA-Public Use
  Company Number: US-B.I. PHARMACEUTICALS,INC./RIDGEFIELD-2013-BI-15914BP

PATIENT
  Age: 87 Year
  Sex: Female
  Weight: 88.45 kg

DRUGS (7)
  1. PRADAXA [Suspect]
     Indication: ATRIAL FIBRILLATION
     Dosage: 300 MG
     Dates: start: 20110525, end: 20111001
  2. SERTRALINE HCL [Concomitant]
     Dosage: 25 MG
     Dates: start: 20110531
  3. DICLOFENAC SOD EC [Concomitant]
     Indication: OSTEOARTHRITIS
     Dates: end: 20111001
  4. LISINOPRIL [Concomitant]
     Dosage: 40 MG
     Dates: start: 20070124
  5. AMLODIPINE BESYLATE [Concomitant]
     Indication: HYPERTENSION
     Dosage: 5 MG
     Dates: end: 20111001
  6. SIMVASTATIN [Concomitant]
     Dosage: 20 MG
     Dates: start: 20070124
  7. ASA [Concomitant]
     Dosage: 81 MG
     Dates: end: 20111001

REACTIONS (7)
  - Upper gastrointestinal haemorrhage [Fatal]
  - Respiratory failure [Fatal]
  - Anaemia [Unknown]
  - Hepatic function abnormal [Unknown]
  - Shock [Unknown]
  - Ecchymosis [Unknown]
  - Bloody discharge [Unknown]
